FAERS Safety Report 9123398 (Version 1)
Quarter: 2013Q1

REPORT INFORMATION
  Report Type: Spontaneous
  Country: US (occurrence: None)
  Receive Date: 20130131
  Receipt Date: 20130131
  Transmission Date: 20140127
  Serious: Yes (Death)
  Sender: FDA-Public Use
  Company Number: IMP_06231_2013

PATIENT
  Age: 49 Year
  Sex: Female

DRUGS (4)
  1. LORATADINE [Suspect]
     Indication: PRODUCT USED FOR UNKNOWN INDICATION
     Dosage: DF RESPIRATORY (INHALATION)
     Route: 055
  2. ACETAMINOPHEN/OXYCODONE [Suspect]
     Indication: PRODUCT USED FOR UNKNOWN INDICATION
     Dosage: DF, RESPIRATORY (INHALATION)
     Route: 055
  3. HYDROCODONE [Suspect]
     Indication: PRODUCT USED FOR UNKNOWN INDICATION
     Dosage: DF RESPIRATORY (INHALATION)
     Route: 055
  4. GABAPENTIN [Suspect]
     Indication: PRODUCT USED FOR UNKNOWN INDICATION
     Dosage: DF RESPIRATORY (INHALATION)
     Route: 055

REACTIONS (3)
  - Cardiac arrest [None]
  - Respiratory arrest [None]
  - Intentional drug misuse [None]
